FAERS Safety Report 11403260 (Version 1)
Quarter: 2015Q3

REPORT INFORMATION
  Report Type: Spontaneous
  Country: US (occurrence: None)
  Receive Date: 20150812
  Receipt Date: 20150812
  Transmission Date: 20151125
  Serious: No
  Sender: FDA-Public Use
  Company Number: 1507USA001594

PATIENT
  Sex: Female

DRUGS (1)
  1. RAGWITEK [Suspect]
     Active Substance: AMBROSIA ARTEMISIIFOLIA POLLEN
     Indication: ALLERGY PROPHYLAXIS
     Dates: start: 20150521, end: 201506

REACTIONS (3)
  - Oropharyngeal discomfort [None]
  - Ear discomfort [None]
  - Cheilitis [None]

NARRATIVE: CASE EVENT DATE: 201505
